FAERS Safety Report 8542504-6 (Version None)
Quarter: 2012Q3

REPORT INFORMATION
  Report Type: 
  Country: None (occurrence: None)
  Receive Date: 20120726
  Receipt Date: 20110727
  Transmission Date: 20120928
  Serious: Yes (Other)
  Sender: FDA-Public Use
  Company Number: US-ASTRAZENECA-2011SE45077

PATIENT
  Age: 26 Year
  Sex: Male

DRUGS (4)
  1. KEPRO [Concomitant]
  2. XANAX [Concomitant]
  3. SEROQUEL XR [Suspect]
     Route: 048
     Dates: start: 20110718, end: 20110719
  4. ESOMEPRAZOLE [Concomitant]

REACTIONS (1)
  - CONVULSION [None]
